FAERS Safety Report 17190704 (Version 2)
Quarter: 2020Q1

REPORT INFORMATION
  Report Type: Spontaneous
  Country: GB (occurrence: GB)
  Receive Date: 20191223
  Receipt Date: 20200313
  Transmission Date: 20200409
  Serious: Yes (Disabling)
  Sender: FDA-Public Use
  Company Number: GB-DRREDDYS-GER/UKI/19/0117375

PATIENT
  Age: 37 Year
  Sex: Male

DRUGS (2)
  1. TERBINAFINE. [Suspect]
     Active Substance: TERBINAFINE
     Route: 048
     Dates: start: 20170712, end: 201712
  2. TERBINAFINE. [Suspect]
     Active Substance: TERBINAFINE
     Indication: NAIL INFECTION
     Route: 048
     Dates: start: 20160311, end: 201608

REACTIONS (5)
  - Hairy cell leukaemia [Not Recovered/Not Resolved]
  - Nausea [Recovered/Resolved]
  - Abnormal loss of weight [Unknown]
  - Fatigue [Recovered/Resolved]
  - Tinnitus [Recovered/Resolved]

NARRATIVE: CASE EVENT DATE: 2016
